FAERS Safety Report 8160510-0 (Version None)
Quarter: 2012Q1

REPORT INFORMATION
  Report Type: 
  Country: None (occurrence: None)
  Receive Date: 20120223
  Receipt Date: 20120216
  Transmission Date: 20120608
  Serious: Yes (Other)
  Sender: FDA-Public Use
  Company Number: BE-B.I. PHARMACEUTICALS,INC./RIDGEFIELD-2012-EU-00996GD

PATIENT
  Age: 5 Year
  Sex: Male

DRUGS (1)
  1. PRAMIPEXOLE DIHYCHLLORIDE [Suspect]
     Indication: MOTOR DYSFUNCTION

REACTIONS (2)
  - HYPOTENSION [None]
  - HYPOGLYCAEMIA [None]
